FAERS Safety Report 17476891 (Version 2)
Quarter: 2020Q2

REPORT INFORMATION
  Report Type: Report from Study
  Country: US (occurrence: US)
  Receive Date: 20200228
  Receipt Date: 20200427
  Transmission Date: 20200713
  Serious: Yes (Hospitalization, Other)
  Sender: FDA-Public Use
  Company Number: US-JNJFOC-20191000036

PATIENT
  Age: 30 Year
  Sex: Male

DRUGS (2)
  1. STELARA [Suspect]
     Active Substance: USTEKINUMAB
     Indication: CROHN^S DISEASE
     Dosage: INFUSION
     Route: 058
     Dates: start: 20190329
  2. STELARA [Suspect]
     Active Substance: USTEKINUMAB
     Dosage: 90 MG/1 ML
     Route: 058

REACTIONS (3)
  - Large intestine perforation [Unknown]
  - Abdominal abscess [Unknown]
  - Ankle fracture [Unknown]

NARRATIVE: CASE EVENT DATE: 201908
